FAERS Safety Report 14938914 (Version 1)
Quarter: 2018Q2

REPORT INFORMATION
  Report Type: Other
  Country: JP (occurrence: JP)
  Receive Date: 20180525
  Receipt Date: 20180525
  Transmission Date: 20180711
  Serious: Yes (Hospitalization, Other)
  Sender: FDA-Public Use
  Company Number: JP-ACTELION-A-CH2018-172654

PATIENT
  Age: 35 Year
  Sex: Female

DRUGS (2)
  1. EPOPROSTENOL SODIUM. [Suspect]
     Active Substance: EPOPROSTENOL SODIUM
     Indication: PULMONARY ARTERIAL HYPERTENSION
     Dosage: UNK
     Route: 042
     Dates: start: 201609
  2. EPOPROSTENOL SODIUM. [Suspect]
     Active Substance: EPOPROSTENOL SODIUM
     Dosage: UNK
     Route: 042
     Dates: end: 201702

REACTIONS (14)
  - Hypopituitarism [Unknown]
  - Hyperthermia [Unknown]
  - Pyrexia [Unknown]
  - Thyroid adenoma [Unknown]
  - Rathke^s cleft cyst [Unknown]
  - Adrenocorticotropic hormone deficiency [Unknown]
  - Silent thyroiditis [Unknown]
  - Thyroiditis [Unknown]
  - Hyponatraemia [Unknown]
  - Hyperthyroidism [Unknown]
  - Adrenal insufficiency [Unknown]
  - Decreased appetite [Unknown]
  - Hypothyroidism [Unknown]
  - Eosinophilia [Unknown]

NARRATIVE: CASE EVENT DATE: 201701
